FAERS Safety Report 5829651-4 (Version None)
Quarter: 2008Q3

REPORT INFORMATION
  Report Type: 
  Country: None (occurrence: None)
  Receive Date: 20080729
  Receipt Date: 20080715
  Transmission Date: 20090109
  Serious: Yes (Other)
  Sender: FDA-Public Use
  Company Number: B0529704A

PATIENT
  Age: 12 Year
  Sex: Female

DRUGS (9)
  1. LAMIVUDINE [Suspect]
     Indication: HIV INFECTION
     Dates: start: 19990101
  2. ZIDOVUDINE [Suspect]
     Indication: HIV INFECTION
     Dates: start: 19990101
  3. ABACAVIR SULFATE [Suspect]
     Indication: HIV INFECTION
     Dates: start: 20050101
  4. STAVUDINE [Suspect]
     Indication: HIV INFECTION
     Dates: start: 20020101
  5. DIDANOSINE [Suspect]
     Indication: HIV INFECTION
     Dates: start: 20020101
  6. EFAVIRENZ [Suspect]
     Indication: HIV INFECTION
     Dates: start: 20020101
  7. LOPINAVIR AND RITONAVIR [Suspect]
     Indication: HIV INFECTION
     Dates: start: 20050101
  8. RITONAVIR (FORMULATION UNKNOWN) (RITONAVIR) [Suspect]
     Indication: HIV INFECTION
     Dates: start: 20050101
  9. INDINAVIR SULFATE (FORMULATION UNKNOWN) (INDINAVIR) [Suspect]
     Indication: HIV INFECTION
     Dates: start: 19990101

REACTIONS (4)
  - DRUG TOXICITY [None]
  - FALL [None]
  - PATHOLOGICAL FRACTURE [None]
  - TREATMENT FAILURE [None]
